FAERS Safety Report 11443073 (Version 1)
Quarter: 2015Q3

REPORT INFORMATION
  Report Type: Spontaneous
  Country: US (occurrence: US)
  Receive Date: 20150901
  Receipt Date: 20150901
  Transmission Date: 20151125
  Serious: No
  Sender: FDA-Public Use
  Company Number: US-PFIZER INC-2015288121

PATIENT
  Age: 65 Year
  Sex: Female
  Weight: 58 kg

DRUGS (3)
  1. CHANTIX [Suspect]
     Active Substance: VARENICLINE TARTRATE
     Indication: COAGULOPATHY
     Dosage: 5 MG, 2X/DAY, ONCE IN THE MORNING AND ONCE AT LUNCH TIME
     Route: 048
     Dates: start: 20150825
  2. CHANTIX [Suspect]
     Active Substance: VARENICLINE TARTRATE
     Indication: SMOKING CESSATION THERAPY
     Dosage: 5 MG, 1X/DAY
     Route: 048
     Dates: start: 20150822, end: 20150824
  3. WARFARIN [Concomitant]
     Active Substance: WARFARIN
     Dosage: 5 MG, 1X/DAY, AT NIGHT

REACTIONS (1)
  - Somnolence [Recovering/Resolving]

NARRATIVE: CASE EVENT DATE: 20150822
